FAERS Safety Report 4510540-2 (Version None)
Quarter: 2004Q4

REPORT INFORMATION
  Report Type: 
  Country: None (occurrence: None)
  Receive Date: 20041122
  Receipt Date: 20041027
  Transmission Date: 20050328
  Serious: Yes (Hospitalization)
  Sender: FDA-Public Use
  Company Number: 2004SP000108

PATIENT
  Age: 44 Year
  Sex: Male
  Weight: 74.8435 kg

DRUGS (8)
  1. XOPENEX [Suspect]
     Indication: ASTHMA
     Dosage: 1.25 MG; Q6H; INHALATION
     Route: 055
     Dates: start: 20040428, end: 20040429
  2. ALBUTEROL [Concomitant]
  3. ATROVENT [Concomitant]
  4. ALBUTEROL [Concomitant]
  5. SOLU-MEDROL [Concomitant]
  6. MAGNESIUM [Concomitant]
  7. LEVAQUIN [Concomitant]
  8. CLINDAMYCIN HCL [Concomitant]

REACTIONS (2)
  - ASTHMA [None]
  - DRUG ABUSER [None]
